FAERS Safety Report 4444551-2 (Version None)
Quarter: 2004Q3

REPORT INFORMATION
  Report Type: 
  Country: None (occurrence: None)
  Receive Date: 20040909
  Receipt Date: 20040901
  Transmission Date: 20050211
  Serious: Yes (Disabling)
  Sender: FDA-Public Use
  Company Number: US-JNJFOC-20040802294

PATIENT
  Age: 72 Year
  Sex: Female
  Weight: 81.65 kg

DRUGS (19)
  1. TOPAMAX [Suspect]
     Dosage: 1 TAB/DAY
     Route: 049
     Dates: start: 20040720, end: 20040729
  2. TOPAMAX [Suspect]
     Indication: HEADACHE
     Dosage: 2 TABS/DAY
     Route: 049
     Dates: start: 20040720, end: 20040729
  3. HYDROCHLOROTHIAZIDE [Concomitant]
  4. PRIMIDONE [Concomitant]
  5. VIOXX [Concomitant]
  6. PREMARIN [Concomitant]
  7. PREVACID [Concomitant]
  8. GERITOL [Concomitant]
     Indication: VITAMIN SUPPLEMENTATION
  9. OSCAL [Concomitant]
  10. QUININE [Concomitant]
  11. NEURONTIN [Concomitant]
  12. DARVOX [Concomitant]
     Indication: PAIN
  13. SINGULAIR [Concomitant]
  14. DOXAZOSIN [Concomitant]
  15. VERAPAMIL [Concomitant]
  16. ALBUTEROL [Concomitant]
  17. ATROVENT [Concomitant]
  18. SEROVENT [Concomitant]
  19. EROVENT [Concomitant]

REACTIONS (6)
  - ABASIA [None]
  - ARTHRALGIA [None]
  - ASTHENIA [None]
  - CIRCULATORY COLLAPSE [None]
  - FALL [None]
  - UNEXPECTED THERAPEUTIC DRUG EFFECT [None]
